FAERS Safety Report 5314484-8 (Version None)
Quarter: 2007Q2

REPORT INFORMATION
  Report Type: 
  Country: None (occurrence: None)
  Receive Date: 20070502
  Receipt Date: 20070123
  Transmission Date: 20071010
  Serious: No
  Sender: FDA-Public Use
  Company Number: US-GLAXOSMITHKLINE-A0636694A

PATIENT
  Age: 6 Year
  Sex: Male

DRUGS (1)
  1. AMOXICILLIN [Suspect]
     Route: 048

REACTIONS (2)
  - ABNORMAL BEHAVIOUR [None]
  - PSYCHOMOTOR HYPERACTIVITY [None]
